FAERS Safety Report 25791221 (Version 1)
Quarter: 2025Q3

REPORT INFORMATION
  Report Type: Spontaneous
  Country: US (occurrence: US)
  Receive Date: 20250911
  Receipt Date: 20250911
  Transmission Date: 20251021
  Serious: No
  Sender: MERCK SHARP & DOHME LLC
  Company Number: US-009507513-2321095

PATIENT
  Sex: Female

DRUGS (1)
  1. KEYTRUDA [Suspect]
     Active Substance: PEMBROLIZUMAB
     Indication: Malignant melanoma
     Route: 042

REACTIONS (5)
  - Cortisol abnormal [Unknown]
  - Malaise [Unknown]
  - Abdominal discomfort [Unknown]
  - Dizziness [Unknown]
  - Fatigue [Unknown]
